FAERS Safety Report 4933003-9 (Version None)
Quarter: 2006Q1

REPORT INFORMATION
  Report Type: 
  Country: None (occurrence: None)
  Receive Date: 20060301
  Receipt Date: 20060214
  Transmission Date: 20060701
  Serious: Yes (Life-Threatening, Hospitalization, Other)
  Sender: FDA-Public Use
  Company Number: 2006-0009228

PATIENT
  Age: 53 Year
  Sex: Female
  Weight: 68.0396 kg

DRUGS (13)
  1. VIREAD [Suspect]
     Indication: HIV INFECTION
     Dosage: 300 MG, 1 IN 2 D, ORAL; SEE IMAGE
     Route: 048
     Dates: start: 20020619, end: 20040923
  2. VIREAD [Suspect]
     Indication: HIV INFECTION
     Dosage: 300 MG, 1 IN 2 D, ORAL; SEE IMAGE
     Route: 048
     Dates: start: 20050519, end: 20050801
  3. DIDANOSINE [Suspect]
     Indication: HIV INFECTION
  4. SUSTIVA [Concomitant]
  5. KALETRA [Concomitant]
  6. ZYPREXA [Concomitant]
  7. EFFEXOR XR [Concomitant]
  8. REMERON [Concomitant]
  9. CLONAZEPAM [Concomitant]
  10. TRAZODONE HCL [Concomitant]
  11. PROTONIX [Concomitant]
  12. MS CONTIN [Concomitant]
  13. PERCOCET [Concomitant]

REACTIONS (7)
  - BLOOD CALCIUM DECREASED [None]
  - BLOOD POTASSIUM DECREASED [None]
  - CARBON DIOXIDE DECREASED [None]
  - FANCONI SYNDROME [None]
  - FEMORAL NECK FRACTURE [None]
  - HIP FRACTURE [None]
  - PANCREATITIS [None]
